FAERS Safety Report 5419075-6 (Version None)
Quarter: 2007Q3

REPORT INFORMATION
  Report Type: 
  Country: None (occurrence: None)
  Receive Date: 20070820
  Receipt Date: 20070810
  Transmission Date: 20080115
  Serious: Yes (Other)
  Sender: FDA-Public Use
  Company Number: PHMT2007CA01690

PATIENT

DRUGS (1)
  1. DESFERAL [Suspect]
     Dosage: INJECTION

REACTIONS (1)
  - VASCULITIS [None]
